FAERS Safety Report 15916161 (Version 2)
Quarter: 2019Q1

REPORT INFORMATION
  Report Type: Spontaneous
  Country: CA (occurrence: CA)
  Receive Date: 20190204
  Receipt Date: 20190207
  Transmission Date: 20190417
  Serious: Yes (Other)
  Sender: FDA-Public Use
  Company Number: PHHY2019CA023987

PATIENT
  Age: 38 Year

DRUGS (3)
  1. SODIUM CHLORIDE. [Suspect]
     Active Substance: SODIUM CHLORIDE
     Indication: PRODUCT USED FOR UNKNOWN INDICATION
     Dosage: 100 ML, UNK
     Route: 065
  2. PANTHENOL [Suspect]
     Active Substance: PANTHENOL
     Indication: PRODUCT USED FOR UNKNOWN INDICATION
     Dosage: UNK
     Route: 065
  3. CEFTRIAXONE SODIUM. [Suspect]
     Active Substance: CEFTRIAXONE SODIUM
     Indication: PRODUCT USED FOR UNKNOWN INDICATION
     Dosage: UNK
     Route: 042

REACTIONS (7)
  - Respiratory failure [Unknown]
  - Throat irritation [Unknown]
  - Blood pressure decreased [Unknown]
  - Heart rate increased [Unknown]
  - Cardiac arrest [Unknown]
  - Oxygen saturation decreased [Unknown]
  - Unresponsive to stimuli [Unknown]
